FAERS Safety Report 25418935 (Version 2)
Quarter: 2025Q4

REPORT INFORMATION
  Report Type: Report from Study
  Country: CA (occurrence: CA)
  Receive Date: 20250610
  Receipt Date: 20251204
  Transmission Date: 20260118
  Serious: Yes (Other)
  Sender: TAKEDA
  Company Number: CA-TAKEDA-2025TUS004491

PATIENT
  Age: 61 Year
  Sex: Male

DRUGS (3)
  1. VEDOLIZUMAB [Suspect]
     Active Substance: VEDOLIZUMAB
     Indication: Colitis ulcerative
     Dosage: 300 MILLIGRAM
  2. BUDESONIDE [Concomitant]
     Active Substance: BUDESONIDE
     Dosage: 9 MILLIGRAM, QD
     Dates: start: 20230615
  3. PENTASA [Concomitant]
     Active Substance: MESALAMINE
     Indication: Cuffitis
     Dosage: UNK

REACTIONS (4)
  - Haematochezia [Unknown]
  - Rectal haemorrhage [Unknown]
  - Anorectal discomfort [Unknown]
  - Frequent bowel movements [Unknown]
